FAERS Safety Report 12570327 (Version 1)
Quarter: 2016Q3

REPORT INFORMATION
  Report Type: Spontaneous
  Country: PT (occurrence: PT)
  Receive Date: 20160719
  Receipt Date: 20160719
  Transmission Date: 20161109
  Serious: Yes (Other)
  Sender: FDA-Public Use
  Company Number: PT-PFIZER INC-2016343985

PATIENT
  Age: 53 Year
  Sex: Male

DRUGS (2)
  1. ETANERCEPT [Interacting]
     Active Substance: ETANERCEPT
     Dosage: 1 DF, UNK
  2. METHOTREXATE SODIUM. [Suspect]
     Active Substance: METHOTREXATE SODIUM
     Dosage: 1 DF, UNK
     Route: 058
     Dates: start: 20140925

REACTIONS (3)
  - Transaminases increased [Recovered/Resolved]
  - Hepatotoxicity [Recovered/Resolved]
  - Drug interaction [Recovered/Resolved]

NARRATIVE: CASE EVENT DATE: 20151207
